FAERS Safety Report 4752127-2 (Version None)
Quarter: 2005Q3

REPORT INFORMATION
  Report Type: 
  Country: None (occurrence: None)
  Receive Date: 20050824
  Receipt Date: 20050824
  Transmission Date: 20060218
  Serious: Yes (Hospitalization)
  Sender: FDA-Public Use
  Company Number: None

PATIENT
  Sex: Female
  Weight: 48.0813 kg

DRUGS (2)
  1. ETHAMBUTOL 400MG  VERSAPHARM [Suspect]
     Indication: MYCOBACTERIUM AVIUM COMPLEX INFECTION
     Dosage: 1200MG  ONCE PO
     Route: 048
     Dates: start: 20050725, end: 20050725
  2. ETHAMBUTOL 400 MG  VERSAPHARM [Suspect]
     Indication: MYCOBACTERIUM AVIUM COMPLEX INFECTION
     Dosage: 800MG ONCE PO
     Route: 048
     Dates: start: 20050803, end: 20050803

REACTIONS (10)
  - ALANINE AMINOTRANSFERASE INCREASED [None]
  - ASPARTATE AMINOTRANSFERASE INCREASED [None]
  - ASTHENIA [None]
  - BACK PAIN [None]
  - BODY TEMPERATURE INCREASED [None]
  - CHILLS [None]
  - FATIGUE [None]
  - HYPERAESTHESIA [None]
  - MALAISE [None]
  - PAIN [None]
